FAERS Safety Report 8484046-2 (Version None)
Quarter: 2012Q2

REPORT INFORMATION
  Report Type: 
  Country: None (occurrence: None)
  Receive Date: 20120627
  Receipt Date: 20120627
  Transmission Date: 20120825
  Serious: Yes (Hospitalization)
  Sender: FDA-Public Use
  Company Number: None

PATIENT
  Sex: Female
  Weight: 54 kg

DRUGS (2)
  1. CARBOPLATIN [Suspect]
     Dosage: 614 MG
     Dates: end: 20120611
  2. TAXOTERE [Suspect]
     Dosage: 122 MG
     Dates: end: 20120611

REACTIONS (5)
  - LUNG NEOPLASM [None]
  - LEUKOPENIA [None]
  - PYREXIA [None]
  - FEBRILE NEUTROPENIA [None]
  - NAUSEA [None]
